FAERS Safety Report 4680350-4 (Version None)
Quarter: 2005Q2

REPORT INFORMATION
  Report Type: 
  Country: None (occurrence: None)
  Receive Date: 20050601
  Receipt Date: 20050519
  Transmission Date: 20051028
  Serious: Yes (Other)
  Sender: FDA-Public Use
  Company Number: EMR64300002-3

PATIENT
  Age: 75 Year
  Sex: Male

DRUGS (3)
  1. NIASPAN [Suspect]
     Indication: DYSLIPIDAEMIA
     Dosage: 1000 MG QD PO
     Route: 048
     Dates: start: 20050421, end: 20050422
  2. FLUVASTATIN [Concomitant]
  3. VALSARTAN [Concomitant]

REACTIONS (1)
  - GOUTY ARTHRITIS [None]
